FAERS Safety Report 9693726 (Version 3)
Quarter: 2014Q2

REPORT INFORMATION
  Report Type: Spontaneous
  Country: US (occurrence: US)
  Receive Date: 20131118
  Receipt Date: 20140612
  Transmission Date: 20141212
  Serious: Yes (Hospitalization, Other)
  Sender: FDA-Public Use
  Company Number: US-B.I. PHARMACEUTICALS,INC./RIDGEFIELD-2013-BI-36915BP

PATIENT
  Age: 79 Year
  Sex: Female
  Weight: 81.19 kg

DRUGS (7)
  1. PRADAXA [Suspect]
     Indication: ATRIAL FIBRILLATION
     Dosage: 150 MG
     Route: 065
     Dates: start: 20111107, end: 20120704
  2. NORVASC [Concomitant]
     Dosage: 5 MG
     Route: 048
  3. TOPROL XL [Concomitant]
     Dosage: 100 MG
     Route: 048
  4. SYNTHROID [Concomitant]
     Dosage: 100 MCG
     Route: 048
  5. LASIX [Concomitant]
     Route: 048
  6. CYANOCOBALAMIN [Concomitant]
     Dosage: 50 MCG
     Route: 048
  7. POTASSIUM [Concomitant]
     Route: 048

REACTIONS (6)
  - Peritoneal haemorrhage [Unknown]
  - Splenic rupture [Recovered/Resolved]
  - Fall [Unknown]
  - International normalised ratio increased [Unknown]
  - Thrombin time prolonged [Unknown]
  - Ecchymosis [Unknown]
